FAERS Safety Report 6720966-4 (Version None)
Quarter: 2010Q2

REPORT INFORMATION
  Report Type: 
  Country: None (occurrence: None)
  Receive Date: 20100510
  Receipt Date: 20100421
  Transmission Date: 20101027
  Serious: Yes (Hospitalization)
  Sender: FDA-Public Use
  Company Number: 2010PV000014

PATIENT
  Age: 57 Year
  Sex: Male

DRUGS (3)
  1. DEPOCYT [Suspect]
     Indication: METASTASES TO MENINGES
     Dosage: 50 MG; 1X; INTH
     Route: 037
     Dates: start: 20100326, end: 20100326
  2. DEXAMETHASONE [Concomitant]
  3. PANTOPRAZOLE [Concomitant]

REACTIONS (1)
  - EPILEPSY [None]
